APPROVED DRUG PRODUCT: CABERGOLINE
Active Ingredient: CABERGOLINE
Strength: 0.5MG
Dosage Form/Route: TABLET;ORAL
Application: A218618 | Product #001 | TE Code: AB
Applicant: AMNEAL PHARMACEUTICALS LLC
Approved: Jun 26, 2024 | RLD: No | RS: No | Type: RX